FAERS Safety Report 6019242-7 (Version None)
Quarter: 2008Q4

REPORT INFORMATION
  Report Type: 
  Country: None (occurrence: None)
  Receive Date: 20081224
  Receipt Date: 20081223
  Transmission Date: 20090506
  Serious: Yes (Hospitalization)
  Sender: FDA-Public Use
  Company Number: FR-BRISTOL-MYERS SQUIBB COMPANY-14392930

PATIENT
  Age: 70 Year
  Sex: Female

DRUGS (7)
  1. GLUCOPHAGE [Suspect]
     Indication: DIABETES MELLITUS
     Dosage: WITHDRAWN ON AN UNSPECIFIED DATE
     Route: 048
  2. ALTEISDUO [Suspect]
     Dosage: WITHDRAWN ON AN UNSPECIFIED DATE
     Route: 048
  3. LASILIX RETARD [Suspect]
     Dosage: WITHDRAWN ON AN UNSPECIFIED DATE
     Route: 048
  4. ULTRAVIST (PHARMACY BULK) [Suspect]
     Indication: COMPUTERISED TOMOGRAM
     Dosage: SOLUTION FOR INJECTION
     Dates: start: 20080918, end: 20080918
  5. LANTUS [Concomitant]
     Indication: DIABETES MELLITUS
     Route: 058
  6. PREVISCAN [Concomitant]
  7. PENTOXIFYLLINE [Concomitant]

REACTIONS (3)
  - BLOOD LACTIC ACID INCREASED [None]
  - LACTIC ACIDOSIS [None]
  - RENAL FAILURE ACUTE [None]
